FAERS Safety Report 10035664 (Version 1)
Quarter: 2014Q1

REPORT INFORMATION
  Report Type: Spontaneous
  Country: US (occurrence: None)
  Receive Date: 20140306
  Receipt Date: 20140306
  Transmission Date: 20141002
  Serious: Yes (Other)
  Sender: FDA-Public Use
  Company Number: 163-21880-13033975

PATIENT
  Age: 85 Year
  Sex: Female
  Weight: 52.16 kg

DRUGS (12)
  1. REVLIMID (LENALIDOMIDE) (CAPSULES) [Suspect]
     Indication: PLASMA CELL MYELOMA
     Dosage: 21 IN 28 D
     Route: 048
     Dates: start: 20130125
  2. DEXAMETHASONE (DEXAMETHASONE) [Concomitant]
  3. ADULT ASPIRIN (ACETYLSALICYLIC ACID) [Concomitant]
  4. NOVOLOG (INSULIN ASPART) (SUSPENSION) [Concomitant]
  5. B6 (PYRIDOXINE HYDROCHLORIDE) (TABLETS) [Concomitant]
  6. CARTIA (XT (DILTIAZEM) (CAPSULES) [Concomitant]
  7. PRESSOR VISION [Concomitant]
  8. COD LIVER OIL (COD-LIVER OIL) [Concomitant]
  9. LEVOTHROID (LEVOTHYROXINE SODIUM) (TABLETS) [Concomitant]
  10. FUROSEMIDE (FUROSEMIDE) (TABLETS) [Concomitant]
  11. SOTALOL HCL (SOTALOL HYDROCHLORIDE) (TABLETS) [Concomitant]
  12. IRON (IRON) [Concomitant]

REACTIONS (2)
  - Atrial fibrillation [None]
  - Haemoglobin decreased [None]
